FAERS Safety Report 20783580 (Version 2)
Quarter: 2022Q3

REPORT INFORMATION
  Report Type: Spontaneous
  Country: JP (occurrence: JP)
  Receive Date: 20220504
  Receipt Date: 20220808
  Transmission Date: 20221027
  Serious: Yes (Hospitalization)
  Sender: FDA-Public Use
  Company Number: JP-NOVARTISPH-NVSC2022JP099508

PATIENT
  Age: 66 Year
  Sex: Male
  Weight: 71 kg

DRUGS (10)
  1. NEORAL [Suspect]
     Active Substance: CYCLOSPORINE
     Indication: Interstitial lung disease
     Dosage: 50 MG/DOSE, 100 MG/DAY
     Route: 048
     Dates: start: 20181011, end: 20181019
  2. PREDONINE [Suspect]
     Active Substance: PREDNISOLONE
     Indication: Interstitial lung disease
     Dosage: 40 MG (20 MG IN THE MORNING, 15 MG IN THE NOON, 5 MG IN THE EVENING)
     Route: 048
     Dates: start: 20181011, end: 20181019
  3. PREDONINE [Suspect]
     Active Substance: PREDNISOLONE
     Dosage: 15 MG
     Route: 048
     Dates: start: 20181030, end: 20181106
  4. PREDONINE [Suspect]
     Active Substance: PREDNISOLONE
     Dosage: 10 MG
     Route: 048
     Dates: start: 20181107, end: 20181203
  5. PREDONINE [Suspect]
     Active Substance: PREDNISOLONE
     Dosage: 5 MG
     Route: 048
     Dates: start: 20181204, end: 20190313
  6. PREDONINE [Suspect]
     Active Substance: PREDNISOLONE
     Dosage: 5 MG, QOD
     Route: 048
     Dates: start: 20190314, end: 20190401
  7. PREDNISOLONE [Suspect]
     Active Substance: PREDNISOLONE
     Indication: Interstitial lung disease
     Dosage: 30 MG
     Route: 048
     Dates: start: 20181020, end: 20181023
  8. PREDNISOLONE [Suspect]
     Active Substance: PREDNISOLONE
     Dosage: 20 MG
     Route: 048
     Dates: start: 20181024, end: 20181029
  9. PREDNISOLONE [Suspect]
     Active Substance: PREDNISOLONE
     Dosage: 4 MG
     Route: 048
     Dates: start: 20181204, end: 20190127
  10. PREDNISOLONE [Suspect]
     Active Substance: PREDNISOLONE
     Dosage: 2 MG
     Route: 048
     Dates: start: 20190128, end: 20190218

REACTIONS (3)
  - Alveolar proteinosis [Recovering/Resolving]
  - Condition aggravated [Recovering/Resolving]
  - Product use in unapproved indication [Unknown]

NARRATIVE: CASE EVENT DATE: 20181001
